FAERS Safety Report 4691753-6 (Version None)
Quarter: 2005Q2

REPORT INFORMATION
  Report Type: 
  Country: None (occurrence: None)
  Receive Date: 20050615
  Receipt Date: 20050615
  Transmission Date: 20051028
  Serious: Yes (Hospitalization)
  Sender: FDA-Public Use
  Company Number: None

PATIENT
  Age: 43 Year
  Sex: Male
  Weight: 65.5 kg

DRUGS (2)
  1. CARBAMAZEPINE [Suspect]
     Indication: AGITATION
     Dosage: 100 MG BID ORAL
     Route: 048
     Dates: start: 20050324, end: 20050402
  2. CARBAMAZEPINE [Suspect]
     Indication: AGITATION
     Dosage: 200 MG BID ORAL
     Route: 048
     Dates: start: 20050303, end: 20050324

REACTIONS (2)
  - NEUTROPENIA [None]
  - WOUND INFECTION [None]
